FAERS Safety Report 4546742-9 (Version None)
Quarter: 2005Q1

REPORT INFORMATION
  Report Type: 
  Country: None (occurrence: None)
  Receive Date: 20050105
  Receipt Date: 20041221
  Transmission Date: 20050727
  Serious: Yes (Hospitalization)
  Sender: FDA-Public Use
  Company Number: 2004US001531

PATIENT
  Age: 42 Year
  Sex: Male
  Weight: 48 kg

DRUGS (10)
  1. AMBISOME [Suspect]
     Indication: VISCERAL LEISHMANIASIS
     Dosage: 200.00 MG, UID/QD; INTRAVENOUS (SEE IMAGE)
     Route: 042
     Dates: start: 20040930, end: 20041016
  2. AMBISOME [Suspect]
     Indication: VISCERAL LEISHMANIASIS
     Dosage: 200.00 MG, UID/QD; INTRAVENOUS (SEE IMAGE)
     Route: 042
     Dates: start: 20040401
  3. PIPERACILLIN SODIUM [Suspect]
     Dosage: ORAL
     Route: 048
     Dates: start: 20041004, end: 20041016
  4. EPIVIR [Concomitant]
  5. SUSTIVA [Concomitant]
  6. KALETRA [Concomitant]
  7. AZITHROMYCIN [Concomitant]
  8. PYRIMETHAMINE TAB [Concomitant]
  9. LEDERFOLIN (CALCIUM FOLINATE) [Concomitant]
  10. PENTACARINAT [Concomitant]

REACTIONS (3)
  - HEPATITIS ACUTE [None]
  - PYREXIA [None]
  - RENAL FAILURE [None]
